FAERS Safety Report 5521235-0 (Version None)
Quarter: 2007Q4

REPORT INFORMATION
  Report Type: 
  Country: None (occurrence: None)
  Receive Date: 20071119
  Receipt Date: 20071107
  Transmission Date: 20080405
  Serious: Yes (Death, Hospitalization)
  Sender: FDA-Public Use
  Company Number: RU-SANOFI-SYNTHELABO-A01200712524

PATIENT
  Age: 69 Year
  Sex: Male
  Weight: 110 kg

DRUGS (8)
  1. SIMVASTATIN [Concomitant]
     Indication: HYPERCHOLESTEROLAEMIA
     Route: 048
     Dates: start: 20040101, end: 20060101
  2. ZOFENOPRIL [Concomitant]
     Indication: MYOCARDIAL ISCHAEMIA
     Route: 048
     Dates: start: 20040101, end: 20060101
  3. ZOFENOPRIL [Concomitant]
     Indication: HYPERTENSION
     Route: 048
     Dates: start: 20040101, end: 20060101
  4. METOPROLOL TARTRATE [Concomitant]
     Indication: MYOCARDIAL ISCHAEMIA
     Route: 048
     Dates: start: 20040101, end: 20060101
  5. METOPROLOL TARTRATE [Concomitant]
     Indication: HYPERTENSION
     Route: 048
     Dates: start: 20040101, end: 20060101
  6. PLAVIX [Suspect]
     Indication: PROPHYLAXIS
     Route: 048
     Dates: start: 20050101, end: 20060101
  7. ASPIRIN [Concomitant]
     Indication: MYOCARDIAL ISCHAEMIA
     Route: 048
     Dates: start: 20040101, end: 20060101
  8. ASPIRIN [Concomitant]
     Indication: ARTERIAL THROMBOSIS
     Route: 048
     Dates: start: 20040101, end: 20060101

REACTIONS (6)
  - CHOLANGITIS [None]
  - CHOLECYSTITIS ACUTE [None]
  - CHOLESTASIS [None]
  - DEHYDRATION [None]
  - PERITONITIS [None]
  - POISONING [None]
